FAERS Safety Report 15377510 (Version 1)
Quarter: 2018Q3

REPORT INFORMATION
  Report Type: Spontaneous
  Country: DE (occurrence: DE)
  Receive Date: 20180913
  Receipt Date: 20180913
  Transmission Date: 20181010
  Serious: No
  Sender: FDA-Public Use
  Company Number: DE-ROCHE-2183957

PATIENT
  Sex: Male

DRUGS (2)
  1. OCREVUS [Suspect]
     Active Substance: OCRELIZUMAB
     Indication: RELAPSING MULTIPLE SCLEROSIS
     Dosage: SECOND INFUSION ON 28?AUG?2018
     Route: 042
  2. IMMUNOGLOBULIN [Concomitant]
     Route: 042

REACTIONS (2)
  - Nasopharyngitis [Unknown]
  - Lymphocyte count decreased [Not Recovered/Not Resolved]
